FAERS Safety Report 15328962 (Version 2)
Quarter: 2019Q2

REPORT INFORMATION
  Report Type: Spontaneous
  Country: ES (occurrence: ES)
  Receive Date: 20180829
  Receipt Date: 20190430
  Transmission Date: 20190711
  Serious: Yes (Other)
  Sender: FDA-Public Use
  Company Number: ES-ACCORD-055257

PATIENT
  Age: 74 Year
  Sex: Female

DRUGS (18)
  1. PREDNISONE. [Interacting]
     Active Substance: PREDNISONE
     Indication: ERYTHRODERMIC PSORIASIS
     Route: 048
  2. INSULIN [Concomitant]
     Active Substance: INSULIN NOS
     Dosage: 100 LU DAILY
  3. METHOTREXATE. [Interacting]
     Active Substance: METHOTREXATE
     Indication: PRODUCT USED FOR UNKNOWN INDICATION
     Dosage: ALSO RECEIVED 5 MG,QW
  4. BISOPROLOL [Interacting]
     Active Substance: BISOPROLOL
     Indication: PRODUCT USED FOR UNKNOWN INDICATION
     Dosage: 5 MG DAILY
  5. OMEPRAZOLE. [Interacting]
     Active Substance: OMEPRAZOLE
     Indication: PRODUCT USED FOR UNKNOWN INDICATION
     Dosage: 20 MG DAILY
  6. HYDROCORTISONE. [Interacting]
     Active Substance: HYDROCORTISONE
     Indication: PRODUCT USED FOR UNKNOWN INDICATION
     Route: 061
  7. HYDROCHLOROTHIAZIDE. [Interacting]
     Active Substance: HYDROCHLOROTHIAZIDE
     Indication: PRODUCT USED FOR UNKNOWN INDICATION
  8. ACENOCOUMAROL [Interacting]
     Active Substance: ACENOCOUMAROL
     Indication: PRODUCT USED FOR UNKNOWN INDICATION
     Dosage: 1 MG DAILY
  9. CLOBETASOL [Interacting]
     Active Substance: CLOBETASOL
     Indication: PRODUCT USED FOR UNKNOWN INDICATION
     Route: 061
  10. CLORAZEPATE DIPOTASSIUM/CLORAZEPATE MONOPOTASSIUM/CLORAZEPIC ACID [Interacting]
     Active Substance: CLORAZEPIC ACID
     Indication: PRODUCT USED FOR UNKNOWN INDICATION
     Dosage: 5 MG DAILY
  11. DIGOXIN. [Interacting]
     Active Substance: DIGOXIN
     Indication: PRODUCT USED FOR UNKNOWN INDICATION
     Dosage: 0.125 MG-MILLIGRAMS
  12. FOLIC ACID. [Interacting]
     Active Substance: FOLIC ACID
     Dosage: 5 MG WEEKLY
  13. FUROSEMIDE. [Suspect]
     Active Substance: FUROSEMIDE
     Indication: PRODUCT USED FOR UNKNOWN INDICATION
  14. ALPRAZOLAM. [Interacting]
     Active Substance: ALPRAZOLAM
     Indication: EUPHORIC MOOD
  15. METHYLPREDNISOLONE. [Interacting]
     Active Substance: METHYLPREDNISOLONE
     Indication: ERYTHEMA
     Route: 061
  16. RAMIPRIL. [Interacting]
     Active Substance: RAMIPRIL
     Indication: PRODUCT USED FOR UNKNOWN INDICATION
     Dosage: 5 MG DAILY
  17. DILTIAZEM. [Interacting]
     Active Substance: DILTIAZEM
     Indication: PRODUCT USED FOR UNKNOWN INDICATION
     Dosage: 120 MG DAILY
  18. ENOXAPARIN [Interacting]
     Active Substance: ENOXAPARIN
     Indication: PRODUCT USED FOR UNKNOWN INDICATION
     Dosage: 40 MG DAILY

REACTIONS (10)
  - Euphoric mood [Unknown]
  - Erythema [Recovering/Resolving]
  - Disorientation [Unknown]
  - Erythrodermic psoriasis [Recovering/Resolving]
  - Stupor [Unknown]
  - Drug interaction [Unknown]
  - Somnolence [Unknown]
  - Toxicity to various agents [Recovered/Resolved]
  - Condition aggravated [Recovering/Resolving]
  - Transaminases increased [Recovered/Resolved]
